FAERS Safety Report 19509656 (Version 1)
Quarter: 2021Q3

REPORT INFORMATION
  Report Type: Spontaneous
  Country: RU (occurrence: RU)
  Receive Date: 20210708
  Receipt Date: 20210708
  Transmission Date: 20211014
  Serious: Yes (Other)
  Sender: FDA-Public Use
  Company Number: RU-PFIZER INC-2021815047

PATIENT
  Age: 9 Month
  Sex: Female

DRUGS (4)
  1. METHYLPREDNISOLONE. [Suspect]
     Active Substance: METHYLPREDNISOLONE
     Indication: GRAFT VERSUS HOST DISEASE IN GASTROINTESTINAL TRACT
  2. METHYLPREDNISOLONE. [Suspect]
     Active Substance: METHYLPREDNISOLONE
     Indication: GRAFT VERSUS HOST DISEASE IN SKIN
  3. METHYLPREDNISOLONE. [Suspect]
     Active Substance: METHYLPREDNISOLONE
     Indication: IMMUNOSUPPRESSANT DRUG THERAPY
     Dosage: 1 MG/KG
  4. ETANERCEPT [Concomitant]
     Active Substance: ETANERCEPT
     Indication: GRAFT VERSUS HOST DISEASE IN GASTROINTESTINAL TRACT
     Dosage: UNK

REACTIONS (1)
  - COVID-19 pneumonia [Recovered/Resolved]
